FAERS Safety Report 16145426 (Version 1)
Quarter: 2019Q2

REPORT INFORMATION
  Report Type: Spontaneous
  Country: NL (occurrence: NL)
  Receive Date: 20190402
  Receipt Date: 20190402
  Transmission Date: 20190711
  Serious: Yes (Other)
  Sender: FDA-Public Use
  Company Number: NL-AUROBINDO-AUR-APL-2019-017066

PATIENT

DRUGS (2)
  1. IBUPROFEN 400MG FILM COATED TABLETS [Suspect]
     Active Substance: IBUPROFEN
     Indication: INFLUENZA
     Dosage: 400 MILLIGRAM, 3 TIMES A DAY, 3X PER DAG 1 STUK
     Route: 048
     Dates: start: 20190210, end: 20190211
  2. PARACETAMOL [Concomitant]
     Active Substance: ACETAMINOPHEN
     Indication: PRODUCT USED FOR UNKNOWN INDICATION
     Dosage: UNK
     Route: 065

REACTIONS (2)
  - Dyspepsia [Recovering/Resolving]
  - Tachycardia [Recovered/Resolved]

NARRATIVE: CASE EVENT DATE: 20190211
